FAERS Safety Report 4660629-2 (Version None)
Quarter: 2005Q2

REPORT INFORMATION
  Report Type: 
  Country: None (occurrence: None)
  Receive Date: 20050425
  Receipt Date: 20050118
  Transmission Date: 20051028
  Serious: No
  Sender: FDA-Public Use
  Company Number: US108484

PATIENT
  Age: 60 Year
  Sex: Female
  Weight: 56.5 kg

DRUGS (3)
  1. SENSIPAR [Suspect]
     Indication: HYPERPARATHYROIDISM SECONDARY
     Dosage: 30 MG, 1 IN 1 DAYS,PO
     Route: 048
     Dates: start: 20050103, end: 20050112
  2. SEVELAMER HCL [Concomitant]
  3. PARICALCITOL [Concomitant]

REACTIONS (4)
  - BONE PAIN [None]
  - CHEST DISCOMFORT [None]
  - DYSPNOEA [None]
  - HEADACHE [None]
